FAERS Safety Report 5365169-3 (Version None)
Quarter: 2007Q2

REPORT INFORMATION
  Report Type: 
  Country: None (occurrence: None)
  Receive Date: 20070530
  Receipt Date: 20070312
  Transmission Date: 20071010
  Serious: No
  Sender: FDA-Public Use
  Company Number: 2006PV017411

PATIENT
  Age: 59 Year
  Sex: Female
  Weight: 92.0802 kg

DRUGS (7)
  1. BYETTA [Suspect]
     Indication: DIABETES MELLITUS NON-INSULIN-DEPENDENT
     Dosage: 10 MCG; BID; SC, 5 MCG; BID; SC
     Route: 058
     Dates: start: 20050801, end: 20051201
  2. BYETTA [Suspect]
     Indication: DIABETES MELLITUS NON-INSULIN-DEPENDENT
     Dosage: 10 MCG; BID; SC, 5 MCG; BID; SC
     Route: 058
     Dates: start: 20051201
  3. BYETTA [Suspect]
  4. BYETTA [Suspect]
  5. GLUCOPHAGE [Concomitant]
  6. GLIPIZIDE ER [Concomitant]
  7. METFORMIN HCL [Concomitant]

REACTIONS (8)
  - BLOOD GLUCOSE INCREASED [None]
  - DECREASED APPETITE [None]
  - DRUG INEFFECTIVE FOR UNAPPROVED INDICATION [None]
  - INCREASED APPETITE [None]
  - INJECTION SITE BRUISING [None]
  - INJECTION SITE PAIN [None]
  - NAUSEA [None]
  - WEIGHT DECREASED [None]
